FAERS Safety Report 13780986 (Version 2)
Quarter: 2017Q3

REPORT INFORMATION
  Report Type: Spontaneous
  Country: US (occurrence: US)
  Receive Date: 20170724
  Receipt Date: 20170724
  Transmission Date: 20171127
  Serious: No
  Sender: FDA-Public Use
  Company Number: US-ASTRAZENECA-2017SE72447

PATIENT
  Age: 44 Year
  Sex: Female
  Weight: 69.9 kg

DRUGS (10)
  1. NEXIUM [Suspect]
     Active Substance: ESOMEPRAZOLE MAGNESIUM
     Indication: GASTROOESOPHAGEAL REFLUX DISEASE
     Route: 048
  2. PRILOSEC [Suspect]
     Active Substance: OMEPRAZOLE MAGNESIUM
     Indication: ULCER
     Dosage: GENERIC
     Route: 048
  3. LYRICA [Concomitant]
     Active Substance: PREGABALIN
     Route: 048
  4. WELLBUTRIN [Concomitant]
     Active Substance: BUPROPION HYDROCHLORIDE
     Indication: DEPRESSION
     Route: 048
  5. SULFASALAZINE. [Concomitant]
     Active Substance: SULFASALAZINE
     Indication: BONE DISORDER
     Route: 048
     Dates: start: 20170526
  6. PRILOSEC [Suspect]
     Active Substance: OMEPRAZOLE MAGNESIUM
     Indication: GASTROOESOPHAGEAL REFLUX DISEASE
     Dosage: GENERIC
     Route: 048
  7. NEXIUM 24HR [Suspect]
     Active Substance: ESOMEPRAZOLE MAGNESIUM
     Indication: GASTROOESOPHAGEAL REFLUX DISEASE
     Route: 048
  8. NEXIUM 24HR [Suspect]
     Active Substance: ESOMEPRAZOLE MAGNESIUM
     Indication: ULCER
     Route: 048
  9. NEXIUM [Suspect]
     Active Substance: ESOMEPRAZOLE MAGNESIUM
     Indication: ULCER
     Route: 048
  10. FOLIC ACID. [Concomitant]
     Active Substance: FOLIC ACID
     Route: 048

REACTIONS (18)
  - Device related infection [Unknown]
  - Myalgia [Unknown]
  - Therapeutic response unexpected [Unknown]
  - Off label use [Unknown]
  - Drug ineffective [Unknown]
  - Haemorrhage urinary tract [Unknown]
  - Nephrolithiasis [Unknown]
  - Product use in unapproved indication [Unknown]
  - Pneumonia [Unknown]
  - Fibromyalgia [Unknown]
  - Osteopenia [Unknown]
  - Spinal cord disorder [Unknown]
  - Bladder disorder [Unknown]
  - Immune system disorder [Unknown]
  - Rheumatoid arthritis [Unknown]
  - Renal disorder [Unknown]
  - Abdominal discomfort [Unknown]
  - Anxiety [Unknown]

NARRATIVE: CASE EVENT DATE: 2006
